FAERS Safety Report 16919040 (Version 1)
Quarter: 2019Q4

REPORT INFORMATION
  Report Type: Spontaneous
  Country: US (occurrence: US)
  Receive Date: 20191015
  Receipt Date: 20191015
  Transmission Date: 20200122
  Serious: No
  Sender: FDA-Public Use
  Company Number: US-PFIZER INC-2019445039

PATIENT
  Age: 79 Year
  Sex: Female

DRUGS (24)
  1. METOCLOPRAMIDE HCL [Suspect]
     Active Substance: METOCLOPRAMIDE HYDROCHLORIDE
     Dosage: UNK
  2. PROCHLORPERAZINE. [Suspect]
     Active Substance: PROCHLORPERAZINE
     Dosage: UNK
  3. BUDESONIDE. [Suspect]
     Active Substance: BUDESONIDE
     Dosage: UNK
  4. NITROFURANTOIN. [Suspect]
     Active Substance: NITROFURANTOIN
     Dosage: UNK
  5. CEFTRIAXONE SODIUM. [Suspect]
     Active Substance: CEFTRIAXONE SODIUM
     Dosage: UNK
  6. IBUPROFEN. [Suspect]
     Active Substance: IBUPROFEN
     Dosage: UNK
  7. FEXOFENADINE [Suspect]
     Active Substance: FEXOFENADINE HYDROCHLORIDE
     Dosage: UNK
  8. FLUORIDE [Suspect]
     Active Substance: SODIUM FLUORIDE\STANNOUS FLUORIDE
     Dosage: UNK
  9. LEVOFLOXACIN. [Suspect]
     Active Substance: LEVOFLOXACIN
     Dosage: UNK
  10. METRONIDAZOLE. [Suspect]
     Active Substance: METRONIDAZOLE
     Dosage: UNK
  11. ERYTHROMYCIN. [Suspect]
     Active Substance: ERYTHROMYCIN
     Dosage: UNK
  12. FLUCONAZOLE. [Suspect]
     Active Substance: FLUCONAZOLE
     Dosage: UNK
  13. SIMVASTATIN. [Suspect]
     Active Substance: SIMVASTATIN
     Dosage: UNK
  14. MORPHINE SULFATE. [Suspect]
     Active Substance: MORPHINE SULFATE
     Dosage: UNK
  15. TRIAMTERENE. [Suspect]
     Active Substance: TRIAMTERENE
     Dosage: UNK
  16. HYDROCODONE [Suspect]
     Active Substance: HYDROCODONE
     Dosage: UNK
  17. TIOCONAZOLE. [Suspect]
     Active Substance: TIOCONAZOLE
     Dosage: UNK
  18. LORATADINE. [Suspect]
     Active Substance: LORATADINE
     Dosage: UNK
  19. PREDNISOLONE. [Suspect]
     Active Substance: PREDNISOLONE
     Dosage: UNK
  20. TETRACYCLINE HCL [Suspect]
     Active Substance: TETRACYCLINE HYDROCHLORIDE
     Dosage: UNK
  21. ACYCLOVIR. [Suspect]
     Active Substance: ACYCLOVIR
     Dosage: UNK
  22. POVIDONE-IODINE. [Suspect]
     Active Substance: POVIDONE-IODINE
     Dosage: UNK
  23. CODEINE [Suspect]
     Active Substance: CODEINE
     Dosage: UNK
  24. CORTISONE [Suspect]
     Active Substance: CORTISONE
     Dosage: UNK

REACTIONS (1)
  - Drug hypersensitivity [Unknown]
